FAERS Safety Report 7985371-1 (Version None)
Quarter: 2011Q4

REPORT INFORMATION
  Report Type: 
  Country: None (occurrence: None)
  Receive Date: 20111216
  Receipt Date: 20111128
  Transmission Date: 20120403
  Serious: No
  Sender: FDA-Public Use
  Company Number: US-ABBOTT-11P-163-0878264-00

PATIENT
  Sex: Male
  Weight: 85.352 kg

DRUGS (4)
  1. UNKNOWN MEDICATION [Concomitant]
     Indication: BLOOD CHOLESTEROL INCREASED
  2. LISINOPRIL [Concomitant]
     Indication: HYPERTENSION
  3. MULTI-VITAMIN [Concomitant]
     Indication: ROUTINE HEALTH MAINTENANCE
  4. TRILIPIX [Suspect]
     Indication: BLOOD CHOLESTEROL INCREASED
     Route: 048
     Dates: start: 20090101

REACTIONS (2)
  - ASTHENIA [None]
  - GAIT DISTURBANCE [None]
